FAERS Safety Report 6574149-1 (Version None)
Quarter: 2010Q1

REPORT INFORMATION
  Report Type: 
  Country: None (occurrence: None)
  Receive Date: 20100208
  Receipt Date: 20100128
  Transmission Date: 20100710
  Serious: No
  Sender: FDA-Public Use
  Company Number: US-B.I. PHARMACEUTICALS,INC./RIDGEFIELD-2010-BP-00466BP

PATIENT
  Age: 65 Year
  Sex: Male
  Weight: 108.9 kg

DRUGS (3)
  1. MICARDIS [Suspect]
     Indication: HYPERTENSION
     Dosage: 80 MG
     Dates: start: 20100106, end: 20100107
  2. NEXIUM [Concomitant]
     Dates: start: 20040212
  3. ASPIRIN [Concomitant]
     Dosage: 81 MG
     Dates: start: 20000125

REACTIONS (2)
  - BLOOD PRESSURE INCREASED [None]
  - GLOSSODYNIA [None]
